FAERS Safety Report 9232806 (Version 1)
Quarter: 2013Q2

REPORT INFORMATION
  Report Type: Report from Study
  Country: CA (occurrence: CA)
  Receive Date: 20130416
  Receipt Date: 20130416
  Transmission Date: 20140414
  Serious: Yes (Hospitalization)
  Sender: FDA-Public Use
  Company Number: CA-JNJFOC-20130404890

PATIENT
  Age: 71 Year
  Sex: Female
  Weight: 58.1 kg

DRUGS (8)
  1. REMICADE [Suspect]
     Indication: CROHN^S DISEASE
     Route: 042
     Dates: start: 20091009
  2. DILTIAZEM [Concomitant]
     Route: 065
  3. METFORMIN [Concomitant]
     Route: 065
  4. AZATHIOPRINE [Concomitant]
     Route: 065
  5. RAMIPRIL [Concomitant]
     Route: 065
  6. NEXIUM [Concomitant]
     Route: 065
  7. HYDROCHLOROTHIAZIDE [Concomitant]
     Route: 065
  8. OXYBUTYNIN [Concomitant]
     Route: 065

REACTIONS (3)
  - White blood cell count increased [Unknown]
  - Arrhythmia [Unknown]
  - Hypotension [Unknown]
